FAERS Safety Report 25344853 (Version 1)
Quarter: 2025Q2

REPORT INFORMATION
  Report Type: Spontaneous
  Country: DE (occurrence: DE)
  Receive Date: 20250522
  Receipt Date: 20250522
  Transmission Date: 20250716
  Serious: Yes (Hospitalization, Other)
  Sender: SANOFI AVENTIS
  Company Number: DE-BRISTOL-MYERS SQUIBB COMPANY-2024-112300

PATIENT
  Age: 71 Year
  Sex: Male

DRUGS (6)
  1. KEVZARA [Suspect]
     Active Substance: SARILUMAB
     Indication: Product used for unknown indication
  2. METHOTREXATE [Suspect]
     Active Substance: METHOTREXATE
     Indication: Product used for unknown indication
     Dosage: 15 MG, QW
  3. ORENCIA [Suspect]
     Active Substance: ABATACEPT
     Indication: Rheumatic disorder
     Dosage: 125 MG, QW
     Route: 058
     Dates: end: 20240307
  4. ADALIMUMAB [Suspect]
     Active Substance: ADALIMUMAB
     Indication: Product used for unknown indication
     Dosage: 40 MG, QOW
     Route: 058
  5. FILGOTINIB [Suspect]
     Active Substance: FILGOTINIB
     Indication: Product used for unknown indication
  6. PREDNISOLONE [Concomitant]
     Active Substance: PREDNISOLONE
     Indication: Product used for unknown indication
     Dates: start: 20240325

REACTIONS (2)
  - Rheumatoid arthritis [Recovered/Resolved]
  - Renal cyst [Unknown]

NARRATIVE: CASE EVENT DATE: 20240312
